FAERS Safety Report 10358137 (Version 4)
Quarter: 2014Q3

REPORT INFORMATION
  Report Type: Spontaneous
  Country: US (occurrence: US)
  Receive Date: 20140801
  Receipt Date: 20140915
  Transmission Date: 20150326
  Serious: Yes (Hospitalization)
  Sender: FDA-Public Use
  Company Number: US-JNJFOC-20140718447

PATIENT
  Age: 55 Year
  Sex: Male

DRUGS (1)
  1. TOPAMAX [Suspect]
     Active Substance: TOPIRAMATE
     Indication: PRODUCT USED FOR UNKNOWN INDICATION
     Route: 048
     Dates: start: 201206

REACTIONS (5)
  - Angle closure glaucoma [Recovering/Resolving]
  - Visual impairment [Unknown]
  - Macular fibrosis [Unknown]
  - Choroidal effusion [Unknown]
  - Migraine [Unknown]

NARRATIVE: CASE EVENT DATE: 201206
